FAERS Safety Report 4513416-X (Version None)
Quarter: 2004Q4

REPORT INFORMATION
  Report Type: 
  Country: None (occurrence: None)
  Receive Date: 20041130
  Receipt Date: 20040923
  Transmission Date: 20050328
  Serious: Yes (Hospitalization)
  Sender: FDA-Public Use
  Company Number: US-BRISTOL-MYERS SQUIBB COMPANY-12710711

PATIENT
  Age: 52 Year
  Sex: Male
  Weight: 32 kg

DRUGS (5)
  1. ERBITUX [Suspect]
     Indication: NEOPLASM MALIGNANT
     Dosage: 2ND DOSE, 1ST DOSE 24-AUG-04(770 MG), 3RD DOSE 21-SEP-04(480 MG)-GIVEN AT 250 MG/M2, D/C
     Route: 042
     Dates: start: 20040907, end: 20040907
  2. TYLENOL (CAPLET) [Concomitant]
     Indication: PREMEDICATION
     Dates: start: 20040907, end: 20040907
  3. BENADRYL [Concomitant]
     Indication: PREMEDICATION
     Route: 042
     Dates: start: 20040907, end: 20040907
  4. DILAUDID [Concomitant]
     Indication: PAIN
  5. LACTULOSE [Concomitant]

REACTIONS (2)
  - ABDOMINAL PAIN [None]
  - GASTROSTOMY TUBE INSERTION [None]
